FAERS Safety Report 9238226 (Version 1)
Quarter: 2013Q2

REPORT INFORMATION
  Report Type: Spontaneous
  Country: US (occurrence: None)
  Receive Date: 20130415
  Receipt Date: 20130415
  Transmission Date: 20140414
  Serious: Yes (Other)
  Sender: FDA-Public Use
  Company Number: AUR-APL-2013-01727

PATIENT
  Age: 94 Year
  Sex: Female
  Weight: 68.03 kg

DRUGS (4)
  1. LISINOPRIL (LISINOPRIL) [Suspect]
     Indication: HYPERTENSION
     Dosage: 20 MG (TWO TABLETS OF 10 MG), 2X/DAY, ORAL
     Dates: start: 201204
  2. OLIVE OIL (OLEA EUROPAEA OIL) [Concomitant]
  3. MILK OF MAGNESIA [Concomitant]
  4. DUCOLAX (BISACODYL) [Concomitant]

REACTIONS (5)
  - Blood pressure increased [None]
  - Weight decreased [None]
  - Product quality issue [None]
  - Feeling abnormal [None]
  - Drug ineffective [None]
